FAERS Safety Report 22354902 (Version 2)
Quarter: 2023Q2

REPORT INFORMATION
  Report Type: Spontaneous
  Country: SI (occurrence: SI)
  Receive Date: 20230523
  Receipt Date: 20230529
  Transmission Date: 20230721
  Serious: Yes (Life-Threatening, Hospitalization, Other)
  Sender: FDA-Public Use
  Company Number: None

PATIENT
  Age: 37 Year
  Sex: Female
  Weight: 41 kg

DRUGS (5)
  1. AMLODIPINE BESYLATE [Suspect]
     Active Substance: AMLODIPINE BESYLATE
     Indication: Blood pressure increased
     Dosage: 5 MG, QD (1 TABLET IN THE EVENINGS)
     Route: 048
     Dates: start: 20230404, end: 20230503
  2. INDAPAMIDE [Concomitant]
     Active Substance: INDAPAMIDE
     Indication: Blood pressure increased
     Dosage: 1.5 MG,QD (IN THE MORNING, THE PATIENT TOOK ONE TABLET), FILM-COATED TABLET
     Route: 065
     Dates: start: 20230424, end: 20230424
  3. MICARDIS [Concomitant]
     Active Substance: TELMISARTAN
     Indication: Blood pressure increased
     Dosage: 40 MG,QD (IN THE MORNING)
     Route: 065
  4. ALPRAZOLAM [Concomitant]
     Active Substance: ALPRAZOLAM
     Indication: Product used for unknown indication
     Dosage: UNK
     Route: 065
  5. NITROLINGUAL [Concomitant]
     Active Substance: NITROGLYCERIN
     Indication: Product used for unknown indication
     Dosage: 0.4 MG, AS NECESSARY
     Route: 060

REACTIONS (7)
  - Epistaxis [Recovering/Resolving]
  - Abdominal pain [Unknown]
  - Back pain [Unknown]
  - Arrhythmia [Unknown]
  - Chest pain [Unknown]
  - Tachycardia [Unknown]
  - Rash [Unknown]

NARRATIVE: CASE EVENT DATE: 20230425
